FAERS Safety Report 18679062 (Version 1)
Quarter: 2020Q4

REPORT INFORMATION
  Report Type: Spontaneous
  Country: PL (occurrence: PL)
  Receive Date: 20201229
  Receipt Date: 20201229
  Transmission Date: 20210114
  Serious: Yes (Death, Hospitalization)
  Sender: FDA-Public Use
  Company Number: PL-FRESENIUS KABI-FK202014028

PATIENT
  Age: 54 Year
  Sex: Female

DRUGS (6)
  1. METHOTREXATE. [Concomitant]
     Active Substance: METHOTREXATE
     Indication: DIFFUSE LARGE B-CELL LYMPHOMA
     Dosage: FOUR CYCLES
     Route: 065
  2. PIXANTRONE [Concomitant]
     Active Substance: PIXANTRONE
     Indication: DIFFUSE LARGE B-CELL LYMPHOMA
     Route: 065
     Dates: end: 201906
  3. FILGRASTIM [Concomitant]
     Active Substance: FILGRASTIM
     Indication: DIFFUSE LARGE B-CELL LYMPHOMA
     Dosage: FILGRASTIM THERAPY
     Route: 065
  4. CARBOPLATIN (MANUFACTURER UNKNOWN) [Suspect]
     Active Substance: CARBOPLATIN
     Indication: DIFFUSE LARGE B-CELL LYMPHOMA
     Dosage: HIGH DOSE
     Route: 065
     Dates: start: 201610
  5. ETOPOSIDE (MANUFACTURER UNKNOWN) [Suspect]
     Active Substance: ETOPOSIDE
     Indication: DIFFUSE LARGE B-CELL LYMPHOMA
     Dosage: HIGH DOSE
     Route: 065
     Dates: start: 201610
  6. IFOSFAMIDE. [Suspect]
     Active Substance: IFOSFAMIDE
     Indication: DIFFUSE LARGE B-CELL LYMPHOMA
     Dosage: HIGH DOSE
     Route: 065
     Dates: start: 201610

REACTIONS (1)
  - Acute monocytic leukaemia [Unknown]
